FAERS Safety Report 6682013-2 (Version None)
Quarter: 2010Q2

REPORT INFORMATION
  Report Type: 
  Country: None (occurrence: None)
  Receive Date: 20100414
  Receipt Date: 20100414
  Transmission Date: 20101027
  Serious: Yes (Hospitalization, Other)
  Sender: FDA-Public Use
  Company Number: None

PATIENT
  Age: 20 Year
  Sex: Female
  Weight: 104.7809 kg

DRUGS (2)
  1. MAGNESIUM SULFATE [Suspect]
     Indication: BLOOD PRESSURE
     Dates: start: 20090812, end: 20090815
  2. EPIDURAL UNKNOWN UNKNOWN [Suspect]
     Indication: CONVULSION

REACTIONS (13)
  - ASTHENIA [None]
  - BACK PAIN [None]
  - CHEST PAIN [None]
  - DRUG EXPOSURE DURING PREGNANCY [None]
  - FATIGUE [None]
  - FEELING COLD [None]
  - HYPERTENSION [None]
  - HYPOPHAGIA [None]
  - INSOMNIA [None]
  - PAIN [None]
  - POST PROCEDURAL COMPLICATION [None]
  - PREMATURE LABOUR [None]
  - TREMOR [None]
